FAERS Safety Report 26004545 (Version 1)
Quarter: 2025Q4

REPORT INFORMATION
  Report Type: Report from Study
  Country: CO (occurrence: CO)
  Receive Date: 20251106
  Receipt Date: 20251106
  Transmission Date: 20260117
  Serious: No
  Sender: BIOGEN
  Company Number: CO-BIOGEN-2025BI01321607

PATIENT
  Age: 33 Year
  Sex: Female
  Weight: 78 kg

DRUGS (4)
  1. TYSABRI [Suspect]
     Active Substance: NATALIZUMAB
     Indication: Multiple sclerosis
     Dates: start: 20250410
  2. VITAMIN D [Concomitant]
     Active Substance: VITAMIN D NOS
     Dosage: DOSAGE TEXT:UNKNOWN DOSE?EVERY 24 HOURS ORALLY, START: --2025
     Dates: start: 202504
  3. PREGABALIN [Concomitant]
     Active Substance: PREGABALIN
     Indication: Paralysis
     Dates: start: 2024
  4. PREGABALIN [Concomitant]
     Active Substance: PREGABALIN
     Dates: start: 2025

REACTIONS (3)
  - Multiple sclerosis [Recovered/Resolved]
  - Fatigue [Recovered/Resolved]
  - Swelling face [Recovered/Resolved]

NARRATIVE: CASE EVENT DATE: 20250410
